FAERS Safety Report 4559582-1 (Version None)
Quarter: 2005Q1

REPORT INFORMATION
  Report Type: 
  Country: None (occurrence: None)
  Receive Date: 20050119
  Receipt Date: 20050110
  Transmission Date: 20050727
  Serious: Yes (Hospitalization)
  Sender: FDA-Public Use
  Company Number: K200500029

PATIENT
  Age: 86 Year
  Sex: Female

DRUGS (6)
  1. ALTACE [Suspect]
     Dosage: 1.25 MG, ORAL
     Route: 048
     Dates: end: 20040402
  2. CLARADOL (PARACETAMOL)  EFFERVESCENT TABLET, 500MG [Suspect]
     Dosage: 500 MG, ORAL
     Route: 048
     Dates: end: 20040402
  3. AMLODIPINE BESYLATE [Suspect]
     Dosage: 5 MG, ORAL
     Route: 048
     Dates: end: 20040402
  4. VEINAMITOL (TROXERUTIN) POWDER [Suspect]
     Dosage: 3500 MG, ORAL
     Route: 048
     Dates: end: 20040402
  5. KARDEGIC (ACETYLSALICYLATE LYSINE) POWDER [EXCEPT [DPO]), 160MG [Suspect]
     Dosage: 160 MG, ORAL
     Route: 048
     Dates: end: 20040402
  6. FLECAINIDE ACETATE [Suspect]
     Dosage: 50 MG, ORAL
     Route: 048
     Dates: end: 20040402

REACTIONS (4)
  - DIARRHOEA [None]
  - ENTEROCOLITIS HAEMORRHAGIC [None]
  - HAEMORRHOIDS [None]
  - RECTAL HAEMORRHAGE [None]
